FAERS Safety Report 19092425 (Version 1)
Quarter: 2021Q2

REPORT INFORMATION
  Report Type: Other
  Country: FR (occurrence: FR)
  Receive Date: 20210405
  Receipt Date: 20210405
  Transmission Date: 20210717
  Serious: Yes (Death, Other)
  Sender: FDA-Public Use
  Company Number: FR-APOTEX-2021AP007797

PATIENT
  Age: 42 Year
  Sex: Male

DRUGS (7)
  1. OLANZAPINE. [Suspect]
     Active Substance: OLANZAPINE
     Indication: DRUG ABUSE
     Dosage: UNK (25 G/L)
     Route: 065
     Dates: end: 2021
  2. OXAZEPAM. [Suspect]
     Active Substance: OXAZEPAM
     Indication: DRUG ABUSE
     Dosage: UNK (UNSPECIFIED)
     Route: 065
     Dates: end: 2021
  3. NORDAZEPAM [Suspect]
     Active Substance: NORDAZEPAM
     Indication: DRUG ABUSE
     Dosage: UNK (588 G/L)
     Route: 065
     Dates: end: 2021
  4. PAROXETINE HYDROCHLORIDE. [Suspect]
     Active Substance: PAROXETINE HYDROCHLORIDE
     Indication: DRUG ABUSE
     Dosage: UNK (227 G/L)
     Route: 065
     Dates: end: 2021
  5. METHADONE [Suspect]
     Active Substance: METHADONE HYDROCHLORIDE
     Indication: DRUG ABUSE
     Dosage: UNK (1020 G/L)
     Route: 065
     Dates: end: 2021
  6. DIAZEPAM. [Suspect]
     Active Substance: DIAZEPAM
     Indication: DRUG ABUSE
     Dosage: UNK (534 G/L)
     Route: 065
     Dates: end: 2021
  7. TEMAZEPAM. [Suspect]
     Active Substance: TEMAZEPAM
     Indication: DRUG ABUSE
     Dosage: UNK (UNSPECIFIED)
     Route: 065
     Dates: end: 2021

REACTIONS (3)
  - Drug abuse [Fatal]
  - Respiratory depression [Fatal]
  - Gastrointestinal haemorrhage [Fatal]

NARRATIVE: CASE EVENT DATE: 2021
